FAERS Safety Report 25868994 (Version 1)
Quarter: 2025Q4

REPORT INFORMATION
  Report Type: Spontaneous
  Country: BR (occurrence: BR)
  Receive Date: 20251001
  Receipt Date: 20251001
  Transmission Date: 20260117
  Serious: Yes (Other)
  Sender: BAYER HEALTHCARE PHARMACEUTICALS INC.
  Company Number: BR-BAYER-2025A126510

PATIENT
  Age: 34 Year
  Sex: Female

DRUGS (1)
  1. GADOBUTROL [Suspect]
     Active Substance: GADOBUTROL
     Indication: Magnetic resonance imaging abdominal
     Dosage: ONCE
     Route: 042
     Dates: start: 20250915, end: 20250915

REACTIONS (1)
  - Pyogenic granuloma [Recovered/Resolved]

NARRATIVE: CASE EVENT DATE: 20250915
